FAERS Safety Report 5851143-7 (Version None)
Quarter: 2008Q3

REPORT INFORMATION
  Report Type: 
  Country: None (occurrence: None)
  Receive Date: 20080820
  Receipt Date: 20080815
  Transmission Date: 20090109
  Serious: Yes (Other)
  Sender: FDA-Public Use
  Company Number: B0533705A

PATIENT
  Age: 30 Year
  Sex: Female

DRUGS (2)
  1. SEROXAT [Suspect]
     Indication: ANXIETY
     Dosage: 20MG PER DAY
     Route: 048
     Dates: start: 20080601
  2. ALPRAZOLAM [Suspect]
     Indication: ANXIETY
     Dosage: 2TAB PER DAY
     Route: 048
     Dates: start: 20080601

REACTIONS (2)
  - MENSTRUAL DISORDER [None]
  - VAGINAL HAEMORRHAGE [None]
